FAERS Safety Report 24918926 (Version 2)
Quarter: 2025Q1

REPORT INFORMATION
  Report Type: Spontaneous
  Country: JP (occurrence: JP)
  Receive Date: 20250204
  Receipt Date: 20250220
  Transmission Date: 20250408
  Serious: Yes (Hospitalization)
  Sender: Unknown Manufacturer
  Company Number: JP-MTPC-MTPC2025-0002044

PATIENT
  Age: 61 Year
  Sex: Female

DRUGS (2)
  1. EDARAVONE [Suspect]
     Active Substance: EDARAVONE
     Indication: Amyotrophic lateral sclerosis
     Route: 048
  2. EDARAVONE [Suspect]
     Active Substance: EDARAVONE
     Indication: Amyotrophic lateral sclerosis
     Route: 048

REACTIONS (2)
  - Amyotrophic lateral sclerosis [Unknown]
  - Restrictive pulmonary disease [Unknown]
